FAERS Safety Report 7728628-1 (Version None)
Quarter: 2011Q3

REPORT INFORMATION
  Report Type: 
  Country: None (occurrence: None)
  Receive Date: 20110831
  Receipt Date: 20110831
  Transmission Date: 20111222
  Serious: Yes (Other)
  Sender: FDA-Public Use
  Company Number: None

PATIENT
  Sex: Male
  Weight: 81.6475 kg

DRUGS (2)
  1. DALIRESP [Suspect]
     Indication: CHRONIC OBSTRUCTIVE PULMONARY DISEASE
     Dosage: ONE DAILY
     Dates: start: 20110615, end: 20110616
  2. THEO-24 [Concomitant]

REACTIONS (4)
  - CHEST DISCOMFORT [None]
  - PRESYNCOPE [None]
  - DIZZINESS [None]
  - TACHYCARDIA [None]
